FAERS Safety Report 7245250-4 (Version None)
Quarter: 2011Q1

REPORT INFORMATION
  Report Type: 
  Country: None (occurrence: None)
  Receive Date: 20110126
  Receipt Date: 20110117
  Transmission Date: 20110831
  Serious: Yes (Other)
  Sender: FDA-Public Use
  Company Number: US-ASTRAZENECA-2011SE03278

PATIENT
  Age: 54 Year
  Sex: Female

DRUGS (14)
  1. CRESTOR [Suspect]
     Route: 048
  2. ONGLYZA [Suspect]
     Route: 048
  3. CALTRATE + D [Concomitant]
     Dosage: CALTRATE 600 + D TABLET, 1 TABLET TWO TIMES A DAY
     Route: 048
  4. METOPROLOL [Suspect]
     Route: 048
  5. BENE FIBER [Concomitant]
     Route: 048
  6. NITROGLYCERIN [Concomitant]
     Dosage: 0.4 MG AS REQUIRED
     Route: 048
  7. WOMEN MULTI-VITAMINS [Concomitant]
     Route: 048
  8. LISINOPRIL [Suspect]
     Route: 048
  9. BUPROPION [Concomitant]
  10. PLAVIX [Concomitant]
     Route: 048
  11. GLIPIZIDE [Concomitant]
     Route: 048
  12. LOVAZA [Concomitant]
     Route: 048
  13. ASPIRIN [Concomitant]
     Route: 048
  14. METFORMIN HCL [Concomitant]
     Route: 048

REACTIONS (5)
  - TYPE 2 DIABETES MELLITUS [None]
  - CORONARY ARTERY DISEASE [None]
  - OSTEOPENIA [None]
  - BREAST MASS [None]
  - MIXED HYPERLIPIDAEMIA [None]
